FAERS Safety Report 24911283 (Version 5)
Quarter: 2025Q1

REPORT INFORMATION
  Report Type: Spontaneous
  Country: CA (occurrence: CA)
  Receive Date: 20250131
  Receipt Date: 20250327
  Transmission Date: 20250409
  Serious: Yes (Other)
  Sender: PFIZER
  Company Number: CA-PFIZER INC-202500005851

PATIENT
  Age: 75 Year
  Sex: Female

DRUGS (10)
  1. ABRILADA [Suspect]
     Active Substance: ADALIMUMAB-AFZB
     Indication: Rheumatoid arthritis
     Route: 058
     Dates: start: 20241211
  2. ABRILADA [Suspect]
     Active Substance: ADALIMUMAB-AFZB
     Route: 058
     Dates: start: 20250108
  3. ABRILADA [Suspect]
     Active Substance: ADALIMUMAB-AFZB
  4. ABRILADA [Suspect]
     Active Substance: ADALIMUMAB-AFZB
     Route: 058
  5. ABRILADA [Suspect]
     Active Substance: ADALIMUMAB-AFZB
  6. METHOTREXATE [Concomitant]
     Active Substance: METHOTREXATE
     Indication: Rheumatoid arthritis
     Dosage: 20 MG, WEEKLY
     Route: 065
     Dates: start: 201610
  7. PREDNISONE [Concomitant]
     Active Substance: PREDNISONE
  8. PREDNISONE [Concomitant]
     Active Substance: PREDNISONE
  9. XELJANZ XR [Concomitant]
     Active Substance: TOFACITINIB CITRATE
     Indication: Rheumatoid arthritis
     Route: 048
  10. SULFASALAZINE [Concomitant]
     Active Substance: SULFASALAZINE
     Indication: Rheumatoid arthritis
     Route: 065
     Dates: start: 201610, end: 202002

REACTIONS (6)
  - Therapeutic response shortened [Unknown]
  - Condition aggravated [Recovered/Resolved]
  - Device defective [Unknown]
  - Drug dose omission by device [Unknown]
  - Off label use [Unknown]
  - Wrong technique in device usage process [Unknown]

NARRATIVE: CASE EVENT DATE: 20250101
